FAERS Safety Report 24146471 (Version 1)
Quarter: 2024Q3

REPORT INFORMATION
  Report Type: Report from Study
  Country: DE (occurrence: DE)
  Receive Date: 20240729
  Receipt Date: 20240729
  Transmission Date: 20241017
  Serious: No
  Sender: ROCHE
  Company Number: DE-ROCHE-10000040033

PATIENT
  Age: 63 Year
  Sex: Male

DRUGS (6)
  1. OCREVUS [Suspect]
     Active Substance: OCRELIZUMAB
     Indication: Relapsing multiple sclerosis
     Route: 042
     Dates: start: 20200309
  2. OCREVUS [Suspect]
     Active Substance: OCRELIZUMAB
     Route: 042
     Dates: start: 20190909, end: 20190923
  3. Comirnaty [Concomitant]
     Indication: COVID-19 immunisation
     Route: 030
     Dates: start: 20210504, end: 20210504
  4. Comirnaty [Concomitant]
     Route: 030
     Dates: start: 20210504, end: 20210504
  5. DALFAMPRIDINE [Concomitant]
     Active Substance: DALFAMPRIDINE
     Indication: Gait disturbance
     Route: 048
     Dates: start: 20180105
  6. INFLUENZA VIRUS VACCINE QUADRIVALENT TYPE A+B [Concomitant]
     Active Substance: INFLUENZA VIRUS VACCINE QUADRIVALENT TYPE A+B
     Indication: Influenza immunisation
     Route: 030
     Dates: start: 20211122, end: 20211122

REACTIONS (1)
  - Herpes zoster [Recovered/Resolved]

NARRATIVE: CASE EVENT DATE: 20240525
